FAERS Safety Report 7313922-9 (Version None)
Quarter: 2011Q1

REPORT INFORMATION
  Report Type: 
  Country: None (occurrence: None)
  Receive Date: 20110225
  Receipt Date: 20110128
  Transmission Date: 20110831
  Serious: No
  Sender: FDA-Public Use
  Company Number: US-B.I. PHARMACEUTICALS,INC./RIDGEFIELD-2010-BP-14471BP

PATIENT
  Age: 56 Year
  Sex: Male

DRUGS (7)
  1. CARTIA XT [Concomitant]
     Indication: HYPERTENSION
     Dosage: 240 MG
     Dates: start: 20020101
  2. DIGOXIN [Concomitant]
     Indication: ATRIAL FIBRILLATION
     Dosage: 150 MG
     Dates: start: 20101103
  3. PRADAXA [Suspect]
     Indication: ATRIAL FIBRILLATION
     Dosage: 300 MG
     Route: 048
     Dates: start: 20101110
  4. SIMVASTATIN [Concomitant]
     Indication: BLOOD CHOLESTEROL INCREASED
     Dosage: 40 MG
     Dates: start: 20020101
  5. FLECAINIDE ACETATE [Concomitant]
     Indication: ATRIAL FIBRILLATION
     Dosage: 200 MG
     Dates: start: 20050101
  6. NIASPAN [Concomitant]
     Indication: BLOOD CHOLESTEROL INCREASED
     Dosage: 1000 MG
     Dates: start: 20020101
  7. ASA [Concomitant]
     Indication: CARDIAC DISORDER
     Dosage: 81 MG
     Dates: start: 20050101

REACTIONS (2)
  - DYSPEPSIA [None]
  - PAIN IN EXTREMITY [None]
